FAERS Safety Report 5257073-6 (Version None)
Quarter: 2007Q1

REPORT INFORMATION
  Report Type: 
  Country: None (occurrence: None)
  Receive Date: 20070305
  Receipt Date: 20070305
  Transmission Date: 20070707
  Serious: Yes (Other)
  Sender: FDA-Public Use
  Company Number: None

PATIENT
  Age: 45 Year
  Sex: Male
  Weight: 80.7403 kg

DRUGS (1)
  1. PAXIL CR [Suspect]
     Indication: ANXIETY
     Dosage: 1 TAB  DAILY  PO
     Route: 048
     Dates: start: 20070130, end: 20070225

REACTIONS (6)
  - COLD SWEAT [None]
  - DRUG WITHDRAWAL SYNDROME [None]
  - FEELING HOT AND COLD [None]
  - HEART RATE INCREASED [None]
  - PARANOIA [None]
  - TINNITUS [None]
